FAERS Safety Report 16110429 (Version 1)
Quarter: 2019Q1

REPORT INFORMATION
  Report Type: Spontaneous
  Country: FR (occurrence: FR)
  Receive Date: 20190325
  Receipt Date: 20190325
  Transmission Date: 20190418
  Serious: Yes (Hospitalization, Other)
  Sender: FDA-Public Use
  Company Number: FR-ACCORD-115324

PATIENT
  Age: 84 Year
  Sex: Male

DRUGS (12)
  1. THYROFIX [Concomitant]
     Active Substance: LEVOTHYROXINE SODIUM
     Dosage: STRENGTH: 100 MICROGRAMS, SCORED TABLET
  2. FLUINDIONE [Interacting]
     Active Substance: FLUINDIONE
     Indication: THROMBOSIS PROPHYLAXIS
     Dosage: STRENGTH: 20 MG, SCORED TABLET, 1 DAY OUT OF 2: 15 MG OR 10 MG
     Route: 048
  3. AMIODARONE [Interacting]
     Active Substance: AMIODARONE
     Indication: PRODUCT USED FOR UNKNOWN INDICATION
     Route: 048
  4. UN-ALFA [Concomitant]
     Active Substance: ALFACALCIDOL
  5. BISOPROLOL [Concomitant]
     Active Substance: BISOPROLOL
  6. ALFUZOSIN [Concomitant]
     Active Substance: ALFUZOSIN
     Dosage: STRENGTH: 10 MG
  7. LASILIX [Concomitant]
     Active Substance: FUROSEMIDE
     Dosage: STRENGTH: 40 MG, SCORED TABLET
  8. JANUVIA [Concomitant]
     Active Substance: SITAGLIPTIN PHOSPHATE
     Dosage: STRENGTH; 100 MG
  9. CALCIDOSE [Concomitant]
     Active Substance: CALCIUM CARBONATE
     Dosage: STRENGTH: 500, POWDER FOR ORAL SUSPENSION IN SACHET
  10. RAMIPRIL. [Concomitant]
     Active Substance: RAMIPRIL
  11. ZYMAD [Concomitant]
     Active Substance: CHOLECALCIFEROL
     Dosage: STRENGTH: 80 000 IU, ORAL SOLUTION IN AMPOULE
  12. ATORVASTATIN/ATORVASTATIN CALCIUM [Suspect]
     Active Substance: ATORVASTATIN CALCIUM
     Indication: CARDIOVASCULAR EVENT PROPHYLAXIS
     Route: 048

REACTIONS (2)
  - Epistaxis [Recovered/Resolved]
  - Drug interaction [Unknown]

NARRATIVE: CASE EVENT DATE: 20181101
